FAERS Safety Report 9510170 (Version 2)
Quarter: 2013Q4

REPORT INFORMATION
  Report Type: Spontaneous
  Country: GB (occurrence: GB)
  Receive Date: 20130909
  Receipt Date: 20131014
  Transmission Date: 20140711
  Serious: Yes (Hospitalization)
  Sender: FDA-Public Use
  Company Number: GB-TEVA-430039ISR

PATIENT
  Age: 51 Year
  Sex: Male

DRUGS (7)
  1. LANSOPRAZOLE [Suspect]
     Indication: GASTROOESOPHAGEAL REFLUX DISEASE
     Route: 048
     Dates: end: 20130611
  2. LANSOPRAZOLE [Suspect]
     Dosage: 100 MILLIGRAM DAILY; SINGLE DOSE
     Route: 048
     Dates: start: 20130419
  3. SPRYCEL [Suspect]
     Indication: CHRONIC MYELOID LEUKAEMIA
     Route: 048
     Dates: start: 20130418, end: 20130420
  4. IMATINIB MESILATE [Suspect]
     Indication: CHRONIC MYELOID LEUKAEMIA
     Route: 048
     Dates: start: 20130606, end: 20130613
  5. CITALOPRAM [Concomitant]
     Route: 048
  6. METOCLOPRAMIDE [Concomitant]
  7. ACIDEX [Concomitant]

REACTIONS (5)
  - Glomerulonephritis [Recovering/Resolving]
  - Renal vasculitis [Recovering/Resolving]
  - Chest pain [Unknown]
  - Rash [Unknown]
  - Headache [Unknown]
